FAERS Safety Report 5123717-2 (Version None)
Quarter: 2006Q4

REPORT INFORMATION
  Report Type: 
  Country: None (occurrence: None)
  Receive Date: 20061010
  Receipt Date: 20060928
  Transmission Date: 20070319
  Serious: Yes (Other)
  Sender: FDA-Public Use
  Company Number: 2006UW19181

PATIENT
  Age: 49 Year
  Sex: Female

DRUGS (1)
  1. SEROQUEL [Suspect]
     Indication: PARANOIA
     Route: 048
     Dates: start: 20020301, end: 20060501

REACTIONS (5)
  - ANGIOPATHY [None]
  - EYE HAEMORRHAGE [None]
  - EYE PAIN [None]
  - PRURITUS [None]
  - RASH [None]
